FAERS Safety Report 24578020 (Version 2)
Quarter: 2025Q1

REPORT INFORMATION
  Report Type: Spontaneous
  Country: PL (occurrence: PL)
  Receive Date: 20241104
  Receipt Date: 20250107
  Transmission Date: 20250409
  Serious: Yes (Other)
  Sender: ABBVIE
  Company Number: PL-MYLANLABS-2024M1073620

PATIENT
  Sex: Male

DRUGS (7)
  1. PANCRELIPASE [Suspect]
     Active Substance: PANCRELIPASE
     Indication: Pancreatitis chronic
     Route: 048
  2. PANCRELIPASE [Suspect]
     Active Substance: PANCRELIPASE
     Indication: Pancreatitis chronic
     Route: 048
  3. PANCRELIPASE [Suspect]
     Active Substance: PANCRELIPASE
     Indication: Pancreatitis chronic
     Route: 048
     Dates: start: 20240906
  4. PANCRELIPASE [Suspect]
     Active Substance: PANCRELIPASE
     Indication: Pancreatitis chronic
     Route: 048
  5. PANCRELIPASE [Suspect]
     Active Substance: PANCRELIPASE
     Indication: Pancreatitis chronic
     Route: 048
     Dates: start: 2015
  6. PANCRELIPASE [Suspect]
     Active Substance: PANCRELIPASE
     Indication: Pancreatitis chronic
     Route: 048
  7. PANCRELIPASE [Suspect]
     Active Substance: PANCRELIPASE
     Indication: Pancreatitis chronic
     Route: 065

REACTIONS (9)
  - Large intestinal haemorrhage [Recovered/Resolved]
  - Wrong technique in product usage process [Unknown]
  - Pancreatic enzyme abnormality [Unknown]
  - Product storage error [Unknown]
  - Nausea [Unknown]
  - Faeces discoloured [Unknown]
  - Unevaluable event [Unknown]
  - Pancreatitis [Recovered/Resolved]
  - Therapeutic product effect incomplete [Unknown]
